FAERS Safety Report 10005629 (Version 1)
Quarter: 2014Q1

REPORT INFORMATION
  Report Type: Spontaneous
  Country: US (occurrence: US)
  Receive Date: 20140313
  Receipt Date: 20140313
  Transmission Date: 20141002
  Serious: No
  Sender: FDA-Public Use
  Company Number: US-BIOGENIDEC-2014BI020870

PATIENT
  Age: 46 Year
  Sex: Female

DRUGS (2)
  1. TECFIDERA [Suspect]
     Indication: MULTIPLE SCLEROSIS
     Route: 048
     Dates: start: 20140225
  2. GYLENIA [Concomitant]

REACTIONS (5)
  - Fatigue [Not Recovered/Not Resolved]
  - Memory impairment [Unknown]
  - Mental impairment [Unknown]
  - Sleep disorder [Not Recovered/Not Resolved]
  - Flushing [Not Recovered/Not Resolved]
